FAERS Safety Report 6753089-9 (Version None)
Quarter: 2010Q2

REPORT INFORMATION
  Report Type: 
  Country: None (occurrence: None)
  Receive Date: 20100601
  Receipt Date: 20100526
  Transmission Date: 20101027
  Serious: Yes (Other)
  Sender: FDA-Public Use
  Company Number: 2010SP029477

PATIENT
  Sex: Female

DRUGS (2)
  1. CLARITIN [Suspect]
     Indication: LIP SWELLING
     Dosage: ; ONCE; PO
     Route: 048
     Dates: start: 20100525
  2. CLARITIN [Suspect]
     Indication: SEASONAL ALLERGY
     Dosage: ; ONCE; PO
     Route: 048
     Dates: start: 20100525

REACTIONS (1)
  - DRUG HYPERSENSITIVITY [None]
